FAERS Safety Report 5479627-4 (Version None)
Quarter: 2007Q4

REPORT INFORMATION
  Report Type: 
  Country: None (occurrence: None)
  Receive Date: 20071008
  Receipt Date: 20071003
  Transmission Date: 20080405
  Serious: Yes (Other)
  Sender: FDA-Public Use
  Company Number: A0651232A

PATIENT
  Age: 55 Year
  Sex: Male

DRUGS (4)
  1. IMITREX [Suspect]
     Indication: MIGRAINE
     Dosage: 50MG WEEKLY
     Route: 048
     Dates: start: 19950101
  2. CANASA [Concomitant]
  3. MIGRAINE DRUG (UNSPECIFIED) [Concomitant]
  4. IBUPROFEN [Concomitant]

REACTIONS (3)
  - BLINDNESS [None]
  - GLARE [None]
  - PHOTOPSIA [None]
